FAERS Safety Report 6485036-1 (Version None)
Quarter: 2009Q4

REPORT INFORMATION
  Report Type: 
  Country: None (occurrence: None)
  Receive Date: 20091203
  Receipt Date: 20091124
  Transmission Date: 20100525
  Serious: Yes (Hospitalization)
  Sender: FDA-Public Use
  Company Number: 8055289

PATIENT
  Age: 8 Month
  Sex: Male

DRUGS (2)
  1. THEOPHYLLINE [Suspect]
     Indication: BRONCHITIS
     Dosage: 40 MG /D PO
     Route: 048
  2. AMINOPHYLLINE [Concomitant]

REACTIONS (13)
  - ASPARTATE AMINOTRANSFERASE INCREASED [None]
  - BLOOD CREATINE PHOSPHOKINASE INCREASED [None]
  - BLOOD LACTATE DEHYDROGENASE INCREASED [None]
  - BLOOD PH DECREASED [None]
  - DRUG LEVEL INCREASED [None]
  - EYE MOVEMENT DISORDER [None]
  - HEMIPARESIS [None]
  - POSTICTAL PARALYSIS [None]
  - SOMNOLENCE [None]
  - STATUS EPILEPTICUS [None]
  - TACHYCARDIA [None]
  - TACHYPNOEA [None]
  - TONIC CONVULSION [None]
